FAERS Safety Report 9827192 (Version 1)
Quarter: 2014Q1

REPORT INFORMATION
  Report Type: Spontaneous
  Country: US (occurrence: US)
  Receive Date: 20140117
  Receipt Date: 20140117
  Transmission Date: 20141002
  Serious: Yes (Other)
  Sender: FDA-Public Use
  Company Number: US-SA-2014SA006678

PATIENT
  Sex: 0

DRUGS (1)
  1. LASIX [Suspect]
     Route: 065

REACTIONS (1)
  - Myocardial infarction [Unknown]
